FAERS Safety Report 9876211 (Version 1)
Quarter: 2014Q1

REPORT INFORMATION
  Report Type: Spontaneous
  Country: US (occurrence: None)
  Receive Date: 20140205
  Receipt Date: 20140205
  Transmission Date: 20141002
  Serious: Yes (Life-Threatening)
  Sender: FDA-Public Use
  Company Number: None

PATIENT
  Age: 58 Year
  Sex: Male
  Weight: 57.15 kg

DRUGS (1)
  1. VISIPAQUE [Suspect]
     Indication: SCAN WITH CONTRAST
     Route: 042
     Dates: start: 20140124, end: 20140131

REACTIONS (3)
  - Rash [None]
  - Cyanosis [None]
  - Wheezing [None]
